FAERS Safety Report 9733026 (Version 3)
Quarter: 2015Q3

REPORT INFORMATION
  Report Type: Spontaneous
  Country: US (occurrence: US)
  Receive Date: 20131204
  Receipt Date: 20150804
  Transmission Date: 20151125
  Serious: No
  Sender: FDA-Public Use
  Company Number: US-GILEAD-2009-0021982

PATIENT
  Age: 85 Year
  Sex: Female
  Weight: 73.94 kg

DRUGS (12)
  1. LETAIRIS [Suspect]
     Active Substance: AMBRISENTAN
     Indication: PULMONARY ARTERIAL HYPERTENSION
     Route: 048
     Dates: start: 20090401
  2. COUMADIN [Concomitant]
     Active Substance: WARFARIN SODIUM
  3. MICARDIS [Concomitant]
     Active Substance: TELMISARTAN
  4. ALBUTEROL. [Concomitant]
     Active Substance: ALBUTEROL
  5. XANAX [Concomitant]
     Active Substance: ALPRAZOLAM
  6. RESTASIS [Concomitant]
     Active Substance: CYCLOSPORINE
  7. LASIX [Concomitant]
     Active Substance: FUROSEMIDE
  8. POTASSIUM CHLORIDE. [Concomitant]
     Active Substance: POTASSIUM CHLORIDE
  9. OMEPRAZOLE. [Concomitant]
     Active Substance: OMEPRAZOLE
  10. TENORMIN [Concomitant]
     Active Substance: ATENOLOL
  11. RESTORIL [Concomitant]
     Active Substance: TEMAZEPAM
  12. PARACETAMOL/HYDROCODONE BITARTRATE [Concomitant]

REACTIONS (9)
  - Gastrointestinal disorder [Unknown]
  - International normalised ratio decreased [Unknown]
  - Hordeolum [Unknown]
  - Systemic lupus erythematosus [Unknown]
  - Dysphonia [Unknown]
  - Dyspnoea [Unknown]
  - Peripheral swelling [Unknown]
  - Sinusitis [Unknown]
  - Unevaluable event [Unknown]
